FAERS Safety Report 5576725-1 (Version None)
Quarter: 2007Q4

REPORT INFORMATION
  Report Type: 
  Country: None (occurrence: None)
  Receive Date: 20071228
  Receipt Date: 20071120
  Transmission Date: 20080405
  Serious: No
  Sender: FDA-Public Use
  Company Number: US-BAYER-200716927NA

PATIENT

DRUGS (1)
  1. ULTRAVIST 300 [Suspect]
     Route: 042

REACTIONS (1)
  - CONTRAST MEDIA REACTION [None]
